FAERS Safety Report 6929158-7 (Version None)
Quarter: 2010Q3

REPORT INFORMATION
  Report Type: 
  Country: None (occurrence: None)
  Receive Date: 20100813
  Receipt Date: 20100729
  Transmission Date: 20110219
  Serious: Yes (Hospitalization)
  Sender: FDA-Public Use
  Company Number: 7010731

PATIENT
  Age: 33 Year
  Sex: Female

DRUGS (5)
  1. REBIF [Suspect]
     Indication: MULTIPLE SCLEROSIS
     Dosage: 44 MCG
     Dates: end: 20060101
  2. XANAX [Concomitant]
  3. PERCOCET [Concomitant]
  4. UNSPECIFIED HIGH CHOLESTEROL MEDICATION (CHOLESTEROL-AND TRIGLYCERIDE [Concomitant]
  5. ALBUTEROL [Concomitant]

REACTIONS (5)
  - DEPRESSION [None]
  - FALL [None]
  - MEMORY IMPAIRMENT [None]
  - OVERDOSE [None]
  - SUICIDE ATTEMPT [None]
